FAERS Safety Report 5457280-3 (Version None)
Quarter: 2007Q3

REPORT INFORMATION
  Report Type: 
  Country: None (occurrence: None)
  Receive Date: 20070918
  Receipt Date: 20070207
  Transmission Date: 20080115
  Serious: Yes (Other)
  Sender: FDA-Public Use
  Company Number: US-ASTRAZENECA-2007UW02606

PATIENT
  Age: 65 Year
  Sex: Female

DRUGS (3)
  1. SEROQUEL [Suspect]
     Route: 048
     Dates: start: 20070201
  2. LEXAPRO [Concomitant]
  3. REMERON [Concomitant]

REACTIONS (1)
  - TARDIVE DYSKINESIA [None]
